FAERS Safety Report 16207877 (Version 7)
Quarter: 2024Q3

REPORT INFORMATION
  Report Type: Report from Study
  Country: CA (occurrence: CA)
  Receive Date: 20190417
  Receipt Date: 20240808
  Transmission Date: 20241016
  Serious: Yes (Life-Threatening, Hospitalization, Other)
  Sender: ROCHE
  Company Number: CA-002147023-PHHY2018CA147022

PATIENT
  Age: 30 Year
  Sex: Female

DRUGS (26)
  1. XOLAIR [Suspect]
     Active Substance: OMALIZUMAB
     Indication: Asthma
     Dosage: 75 MG, BIW
     Route: 058
     Dates: start: 20171208
  2. XOLAIR [Suspect]
     Active Substance: OMALIZUMAB
     Dosage: 375 MG, BIW
     Route: 058
     Dates: start: 20180406
  3. XOLAIR [Suspect]
     Active Substance: OMALIZUMAB
     Dosage: 375 MG, BIW
     Route: 058
     Dates: start: 20180629
  4. XOLAIR [Suspect]
     Active Substance: OMALIZUMAB
     Dosage: 375 MG, BIW
     Route: 058
     Dates: start: 20190308
  5. XOLAIR [Suspect]
     Active Substance: OMALIZUMAB
     Dosage: 375 MG, BIW
     Route: 058
     Dates: start: 20190814
  6. XOLAIR [Suspect]
     Active Substance: OMALIZUMAB
     Dosage: 375 MG, BIW
     Route: 058
     Dates: start: 20200406
  7. XOLAIR [Suspect]
     Active Substance: OMALIZUMAB
     Dosage: 375 MG, BIW
     Route: 058
  8. XOLAIR [Suspect]
     Active Substance: OMALIZUMAB
     Dosage: 375 MG, BIW
     Route: 058
     Dates: start: 202306
  9. XOLAIR [Suspect]
     Active Substance: OMALIZUMAB
     Route: 058
  10. AZITHROMYCIN [Concomitant]
     Active Substance: AZITHROMYCIN
     Indication: Bronchopulmonary aspergillosis allergic
     Dosage: UNK
     Route: 065
  11. AZITHROMYCIN [Concomitant]
     Active Substance: AZITHROMYCIN
     Dosage: 1 DF, OTHER
     Route: 048
     Dates: start: 201706
  12. CETIRIZINE HYDROCHLORIDE [Concomitant]
     Active Substance: CETIRIZINE HYDROCHLORIDE
     Indication: Hypersensitivity
     Dosage: 1 DF, QD
     Route: 048
     Dates: start: 2003
  13. CIPROFLOXACIN [Concomitant]
     Active Substance: CIPROFLOXACIN
     Indication: Bronchopulmonary aspergillosis allergic
     Dosage: UNK
     Route: 065
  14. CIPROFLOXACIN [Concomitant]
     Active Substance: CIPROFLOXACIN
     Dosage: 1 DF, BID
     Route: 048
     Dates: start: 20170828
  15. CIPROFLOXACIN [Concomitant]
     Active Substance: CIPROFLOXACIN
     Dosage: UNK
     Dates: start: 201709
  16. PULMICORT TURBUHALER [Concomitant]
     Active Substance: BUDESONIDE
     Indication: Rhinitis
     Dosage: UNK
     Route: 065
  17. PULMICORT TURBUHALER [Concomitant]
     Active Substance: BUDESONIDE
     Dosage: 1 DF, QD
     Route: 045
     Dates: start: 201706
  18. FLONASE [Concomitant]
     Active Substance: FLUTICASONE PROPIONATE
     Indication: Rhinitis
     Dosage: 2 DF, BID
     Route: 045
     Dates: start: 2014
  19. SALINE [Concomitant]
     Active Substance: SODIUM CHLORIDE
     Indication: Rhinitis
     Dosage: 1 DF, QD
     Route: 045
     Dates: start: 201706
  20. BENADRYL [Concomitant]
     Active Substance: DIPHENHYDRAMINE HYDROCHLORIDE
     Indication: Product used for unknown indication
     Dosage: UNK
  21. PREDNISONE [Concomitant]
     Active Substance: PREDNISONE
     Indication: Asthma
     Route: 048
     Dates: start: 201707
  22. PREDNISONE [Concomitant]
     Active Substance: PREDNISONE
     Dosage: FOR A FEW MONTHS
     Route: 048
  23. SYMBICORT [Concomitant]
     Active Substance: BUDESONIDE\FORMOTEROL FUMARATE DIHYDRATE
     Indication: Asthma
     Dosage: 2 DF, BID
     Route: 055
     Dates: start: 2014
  24. VENTOLIN [Concomitant]
     Active Substance: ALBUTEROL SULFATE
     Indication: Asthma
     Dosage: 4 DF, QID
     Route: 055
     Dates: start: 2014
  25. SINGULAIR [Concomitant]
     Active Substance: MONTELUKAST SODIUM
     Indication: Asthma
     Dosage: 1 DF, QD
     Route: 048
     Dates: start: 2015
  26. SPIRIVA [Concomitant]
     Active Substance: TIOTROPIUM BROMIDE MONOHYDRATE
     Indication: Asthma
     Dosage: 2 DF, QD
     Route: 055
     Dates: start: 2015

REACTIONS (25)
  - Lower respiratory tract infection [Not Recovered/Not Resolved]
  - Malaise [Unknown]
  - Bronchopulmonary aspergillosis allergic [Unknown]
  - Asthma [Unknown]
  - Urticaria [Unknown]
  - Pneumonia pseudomonal [Unknown]
  - Bronchiectasis [Unknown]
  - Cough [Unknown]
  - Angioedema [Unknown]
  - Respiratory distress [Unknown]
  - Middle insomnia [Unknown]
  - Dyspnoea [Unknown]
  - Wheezing [Unknown]
  - Accessory muscle [Unknown]
  - Lung disorder [Unknown]
  - Exercise tolerance decreased [Unknown]
  - Condition aggravated [Unknown]
  - Terminal insomnia [Unknown]
  - Obstructive airways disorder [Unknown]
  - Forced vital capacity decreased [Unknown]
  - Product administration error [Unknown]
  - Infection [Unknown]
  - Forced expiratory volume decreased [Not Recovered/Not Resolved]
  - Product dose omission issue [Unknown]
  - Lung disorder [Unknown]

NARRATIVE: CASE EVENT DATE: 20181213
